FAERS Safety Report 4870252-2 (Version None)
Quarter: 2006Q1

REPORT INFORMATION
  Report Type: 
  Country: None (occurrence: None)
  Receive Date: 20060102
  Receipt Date: 20051114
  Transmission Date: 20060701
  Serious: Yes (Life-Threatening)
  Sender: FDA-Public Use
  Company Number: 2005AP05894

PATIENT
  Age: 12188 Day
  Sex: Female

DRUGS (18)
  1. SEROQUEL [Suspect]
     Indication: SCHIZOPHRENIA
     Route: 048
     Dates: start: 20020101, end: 20051005
  2. SEROQUEL [Suspect]
     Route: 048
     Dates: start: 20051009, end: 20051109
  3. SEROQUEL [Suspect]
     Dosage: }300MG DAILY
     Route: 048
     Dates: start: 20051110, end: 20051116
  4. TEGRETOL [Concomitant]
     Indication: EPILEPSY
     Dosage: 0.8-2.6G DIVIDED IN 2 OR 3 DOSES
     Route: 048
     Dates: start: 20051007, end: 20051026
  5. ALEVIATIN [Concomitant]
     Indication: EPILEPSY
     Route: 042
     Dates: start: 20051008, end: 20051009
  6. ALEVIATIN [Concomitant]
     Indication: LIVER DISORDER
     Route: 042
     Dates: start: 20051008, end: 20051009
  7. ALEVIATIN [Concomitant]
     Dosage: 1-2G THREE TIMES DAILY
     Route: 048
     Dates: start: 20051010
  8. ALEVIATIN [Concomitant]
     Dosage: 1-2G THREE TIMES DAILY
     Route: 048
     Dates: start: 20051010
  9. MYSTAN [Concomitant]
     Indication: EPILEPSY
     Route: 048
     Dates: start: 20051016
  10. EXCEGRAN [Concomitant]
     Route: 048
  11. THIOPENTAL SODIUM [Concomitant]
     Indication: EPILEPSY
     Dosage: 1-10G
     Route: 041
     Dates: start: 20051006, end: 20051008
  12. DALACIN [Concomitant]
     Indication: PNEUMONIA
     Route: 042
     Dates: start: 20051010, end: 20051017
  13. PENTCILLIN [Concomitant]
     Indication: PNEUMONIA
     Route: 042
     Dates: start: 20051009, end: 20051018
  14. GASTER D [Concomitant]
     Dosage: DIVIDED INTO 3 DOSES
     Dates: start: 20051009
  15. LAXOBERON [Concomitant]
     Dosage: 10-30 DROPS/DAY
     Dates: start: 20051017
  16. DORMICUM [Concomitant]
     Indication: EPILEPSY
     Route: 041
     Dates: start: 20051006, end: 20051007
  17. CERCINE [Concomitant]
     Indication: EPILEPSY
     Dosage: 10-15 MG DAILY IN 1-5 DOSES
     Dates: start: 20051007, end: 20051008
  18. PHENOBAL [Concomitant]
     Indication: EPILEPSY
     Route: 030
     Dates: start: 20051007, end: 20051007

REACTIONS (7)
  - APHONIA [None]
  - CONFUSIONAL STATE [None]
  - DEEP VEIN THROMBOSIS [None]
  - OEDEMA PERIPHERAL [None]
  - PNEUMONIA [None]
  - RESPIRATORY DISORDER [None]
  - STATUS EPILEPTICUS [None]
